FAERS Safety Report 5040885-1 (Version None)
Quarter: 2006Q2

REPORT INFORMATION
  Report Type: 
  Country: None (occurrence: None)
  Receive Date: 20060629
  Receipt Date: 20060629
  Transmission Date: 20061013
  Serious: Yes (Other)
  Sender: FDA-Public Use
  Company Number: None

PATIENT
  Sex: Male
  Weight: 96.6162 kg

DRUGS (15)
  1. ALPRAZOLAM [Suspect]
     Indication: ANXIETY
     Dosage: 0.5 MG Q4H PRN-120 /20DAYS PO
     Route: 048
  2. DIAZEPAM [Suspect]
     Indication: ANXIETY
     Dosage: 10 MG BID PO
     Route: 048
  3. DIAZEPAM [Concomitant]
  4. ATENOLOL [Concomitant]
  5. LIPITOR [Concomitant]
  6. BUPROPION HCL [Concomitant]
  7. CAPSAICIN [Concomitant]
  8. FLEXERIL [Concomitant]
  9. VICODIN [Concomitant]
  10. DOCUSATE [Concomitant]
  11. ZETIA [Concomitant]
  12. LASIX [Concomitant]
  13. POTASSIUM CHLORIDE [Concomitant]
  14. COUMADIN [Concomitant]
  15. PRILOSEC [Concomitant]

REACTIONS (2)
  - ALCOHOL USE [None]
  - FALL [None]
